FAERS Safety Report 15130208 (Version 1)
Quarter: 2018Q3

REPORT INFORMATION
  Report Type: Spontaneous
  Country: US (occurrence: US)
  Receive Date: 20180615
  Receipt Date: 20180615
  Transmission Date: 20181010
  Serious: Yes (Hospitalization, Disabling)
  Sender: FDA-Public Use
  Company Number: None

PATIENT
  Age: 28 Year
  Sex: Female
  Weight: 74.25 kg

DRUGS (7)
  1. BACLOFEN. [Concomitant]
     Active Substance: BACLOFEN
  2. EFFEXOR [Concomitant]
     Active Substance: VENLAFAXINE HYDROCHLORIDE
  3. KLONOPIN [Concomitant]
     Active Substance: CLONAZEPAM
  4. LUPRON DEPOT [Suspect]
     Active Substance: LEUPROLIDE ACETATE
     Indication: ENDOMETRIOSIS
     Dosage: QUANTITY:6 INJECTION(S);OTHER FREQUENCY:EVERY THREE MOTHS;?
     Route: 030
     Dates: start: 20150915, end: 20170106
  5. VITAMIN B SUPPLEMENTS [Concomitant]
  6. GABAPENTIN. [Concomitant]
     Active Substance: GABAPENTIN
  7. ATIVAN [Concomitant]
     Active Substance: LORAZEPAM

REACTIONS (15)
  - Wheelchair user [None]
  - Mobility decreased [None]
  - Asthenia [None]
  - Musculoskeletal disorder [None]
  - Fatigue [None]
  - Condition aggravated [None]
  - Anxiety [None]
  - Depression [None]
  - Hysterectomy [None]
  - Quality of life decreased [None]
  - Eye disorder [None]
  - Nervous system disorder [None]
  - Gastrointestinal disorder [None]
  - Insurance issue [None]
  - Mental impairment [None]

NARRATIVE: CASE EVENT DATE: 20160520
